FAERS Safety Report 13258304 (Version 3)
Quarter: 2018Q3

REPORT INFORMATION
  Report Type: Report from Study
  Country: CA (occurrence: CA)
  Receive Date: 20170222
  Receipt Date: 20180824
  Transmission Date: 20181010
  Serious: Yes (Other)
  Sender: FDA-Public Use
  Company Number: CA-ROCHE-1895820

PATIENT
  Age: 68 Year
  Sex: Male

DRUGS (8)
  1. OXYNEO [Concomitant]
     Active Substance: OXYCODONE
  2. PREDNISONE. [Concomitant]
     Active Substance: PREDNISONE
  3. GABAPENTIN. [Concomitant]
     Active Substance: GABAPENTIN
  4. RITUXAN [Suspect]
     Active Substance: RITUXIMAB
     Indication: GRANULOMATOSIS WITH POLYANGIITIS
     Route: 042
     Dates: start: 2004
  5. DURAGESIC (CANADA) [Concomitant]
  6. NEUPOGEN [Concomitant]
     Active Substance: FILGRASTIM
  7. NEXIUM [Concomitant]
     Active Substance: ESOMEPRAZOLE MAGNESIUM
  8. VITAMIN C [Concomitant]
     Active Substance: ASCORBIC ACID

REACTIONS (7)
  - Anaphylactic reaction [Unknown]
  - Cutaneous symptom [Unknown]
  - Pemphigoid [Not Recovered/Not Resolved]
  - Febrile neutropenia [Not Recovered/Not Resolved]
  - Vasculitis [Unknown]
  - Anaemia [Unknown]
  - Neuropathy peripheral [Not Recovered/Not Resolved]

NARRATIVE: CASE EVENT DATE: 20180719
